FAERS Safety Report 8811939 (Version 1)
Quarter: 2012Q4

REPORT INFORMATION
  Report Type: 
  Country: AU (occurrence: AU)
  Receive Date: 20120927
  Receipt Date: 20120927
  Transmission Date: 20130627
  Serious: Yes (Other)
  Sender: FDA-Public Use
  Company Number: AU-ROXANE LABORATORIES, INC.-2012-RO-01902RO

PATIENT
  Age: 10 Month
  Sex: Male

DRUGS (2)
  1. PROPRANOLOL [Suspect]
     Indication: HAEMANGIOMA
  2. PROPRANOLOL [Suspect]

REACTIONS (4)
  - Wheezing [Recovered/Resolved]
  - Bronchiolitis [Unknown]
  - Upper respiratory tract infection [Unknown]
  - Cough [Unknown]
